FAERS Safety Report 9627122 (Version 1)
Quarter: 2013Q4

REPORT INFORMATION
  Report Type: Spontaneous
  Country: US (occurrence: None)
  Receive Date: 20131011
  Receipt Date: 20131011
  Transmission Date: 20140711
  Serious: Yes (Other)
  Sender: FDA-Public Use
  Company Number: ACO_36582_2013

PATIENT
  Age: 53 Year
  Sex: Male

DRUGS (5)
  1. AMPYRA [Suspect]
     Indication: GAIT DISTURBANCE
     Route: 048
     Dates: start: 2013, end: 20130919
  2. DOXAZOSIN (DOXAZOSIN MESILATE) [Concomitant]
  3. ATENOLOL (ATENOLOL) [Concomitant]
  4. SIMVASTATIN (SIMVASTATIN) [Concomitant]
  5. AVONEX (INTERFERON BETA-1A) [Concomitant]

REACTIONS (11)
  - Convulsion [None]
  - Micturition urgency [None]
  - Pollakiuria [None]
  - Urinary incontinence [None]
  - Micturition disorder [None]
  - Urine output increased [None]
  - Dysphonia [None]
  - Pain in jaw [None]
  - Fatigue [None]
  - Oropharyngeal pain [None]
  - Headache [None]
